FAERS Safety Report 9781914 (Version 3)
Quarter: 2014Q1

REPORT INFORMATION
  Report Type: Spontaneous
  Country: JP (occurrence: JP)
  Receive Date: 20131225
  Receipt Date: 20140331
  Transmission Date: 20141002
  Serious: Yes (Hospitalization)
  Sender: FDA-Public Use
  Company Number: JP-AMGEN-JPNSP2013090563

PATIENT
  Age: 79 Year
  Sex: Male
  Weight: 53 kg

DRUGS (5)
  1. RANMARK [Suspect]
     Indication: METASTASES TO BONE
     Dosage: 120 MG, UNK
     Route: 058
     Dates: start: 20120725, end: 20130920
  2. LEUPLIN [Concomitant]
     Indication: PROSTATE CANCER
     Dosage: 11.25 MG, QD
     Route: 058
     Dates: start: 20070926
  3. DECADRON                           /00016001/ [Concomitant]
     Indication: PROSTATE CANCER
     Dosage: 1 MG, QD
     Route: 048
     Dates: start: 20110406
  4. MAGMITT [Concomitant]
     Indication: CONSTIPATION
     Dosage: 250 MG, TID
     Route: 048
     Dates: start: 20131025
  5. ZOLPIDEM [Concomitant]
     Indication: INSOMNIA
     Dosage: 5 MG, QD
     Route: 048
     Dates: start: 20131025

REACTIONS (1)
  - Osteonecrosis of jaw [Unknown]
